FAERS Safety Report 11084336 (Version 1)
Quarter: 2015Q2

REPORT INFORMATION
  Report Type: Spontaneous
  Country: US (occurrence: US)
  Receive Date: 20150502
  Receipt Date: 20150502
  Transmission Date: 20150821
  Serious: Yes (Other)
  Sender: FDA-Public Use
  Company Number: US-AUROBINDO-AUR-APU-2015-03243

PATIENT

DRUGS (1)
  1. FLUOXETINE CAPSULES USP 20 MG [Suspect]
     Active Substance: FLUOXETINE HYDROCHLORIDE
     Indication: PRODUCT USED FOR UNKNOWN INDICATION
     Dosage: 20 MG, UNK
     Route: 065

REACTIONS (8)
  - Paraesthesia [Unknown]
  - Palpitations [Unknown]
  - Headache [Unknown]
  - Product substitution issue [Unknown]
  - Mood swings [Unknown]
  - Crying [Unknown]
  - Lethargy [Unknown]
  - Decreased appetite [Unknown]
